FAERS Safety Report 8598975-2 (Version None)
Quarter: 2012Q3

REPORT INFORMATION
  Report Type: 
  Country: None (occurrence: None)
  Receive Date: 20120816
  Receipt Date: 20120803
  Transmission Date: 20120928
  Serious: No
  Sender: FDA-Public Use
  Company Number: US-ASTRAZENECA-2012SE55191

PATIENT
  Age: 59 Year
  Sex: Male

DRUGS (1)
  1. BRILINTA [Suspect]
     Route: 048
     Dates: start: 20120717, end: 20120802

REACTIONS (3)
  - DYSPNOEA [None]
  - AGITATION [None]
  - CHEST PAIN [None]
